FAERS Safety Report 7250191-2 (Version None)
Quarter: 2011Q1

REPORT INFORMATION
  Report Type: 
  Country: None (occurrence: None)
  Receive Date: 20110128
  Receipt Date: 20110104
  Transmission Date: 20110831
  Serious: Yes (Hospitalization, Other)
  Sender: FDA-Public Use
  Company Number: US-BAYER-200929854NA

PATIENT
  Sex: Female
  Weight: 111 kg

DRUGS (1)
  1. MIRENA [Suspect]
     Indication: CONTRACEPTION
     Dosage: CONTINUOUS DELIVERY
     Route: 015
     Dates: start: 20100604, end: 20101109

REACTIONS (4)
  - CAESAREAN SECTION [None]
  - DEVICE EXPULSION [None]
  - PREMATURE LABOUR [None]
  - PREGNANCY WITH CONTRACEPTIVE DEVICE [None]
